FAERS Safety Report 6257291-4 (Version None)
Quarter: 2009Q2

REPORT INFORMATION
  Report Type: 
  Country: None (occurrence: None)
  Receive Date: 20090630
  Receipt Date: 20090630
  Transmission Date: 20091009
  Serious: Yes (Other)
  Sender: FDA-Public Use
  Company Number: None

PATIENT
  Age: 40 Year
  Sex: Female
  Weight: 49.8957 kg

DRUGS (1)
  1. CIPRO [Suspect]
     Indication: URINARY TRACT INFECTION
     Dosage: 500MG 2X DAY PO
     Route: 048
     Dates: start: 20090626, end: 20090627

REACTIONS (3)
  - EMOTIONAL DISTRESS [None]
  - HYPOAESTHESIA [None]
  - PARAESTHESIA [None]
